FAERS Safety Report 4445618-5 (Version None)
Quarter: 2004Q3

REPORT INFORMATION
  Report Type: 
  Country: None (occurrence: None)
  Receive Date: 20040902
  Receipt Date: 20040818
  Transmission Date: 20050211
  Serious: Yes (Disabling)
  Sender: FDA-Public Use
  Company Number: A01200400296

PATIENT
  Age: 50 Year
  Sex: Female

DRUGS (5)
  1. PLAQUENIL [Suspect]
     Dosage: 200 MG BID; ORAL
     Route: 048
     Dates: start: 19950605, end: 20030701
  2. ESOMEPRAZOLE [Concomitant]
  3. OMEPRAZOLE [Concomitant]
  4. IBUPROFEN [Concomitant]
  5. NIFEDIPINE [Concomitant]

REACTIONS (4)
  - RETINAL DEPOSITS [None]
  - RETINAL TOXICITY [None]
  - SCOTOMA [None]
  - VISUAL DISTURBANCE [None]
